FAERS Safety Report 14628947 (Version 1)
Quarter: 2018Q1

REPORT INFORMATION
  Report Type: Report from Study
  Country: SG (occurrence: SG)
  Receive Date: 20180313
  Receipt Date: 20180313
  Transmission Date: 20180509
  Serious: Yes (Life-Threatening)
  Sender: FDA-Public Use
  Company Number: SG-ROCHE-1515422

PATIENT
  Age: 45 Year
  Sex: Female

DRUGS (100)
  1. NEPRO HP [Concomitant]
     Dosage: ML (MILLILITER; CM3)
     Route: 065
     Dates: start: 20141222, end: 20141222
  2. NEPRO HP [Concomitant]
     Dosage: ML (MILLILITER; CM3)
     Route: 065
     Dates: start: 20141222, end: 20141225
  3. PROCODIN [Concomitant]
     Indication: COUGH
     Route: 065
     Dates: start: 20141120, end: 20141129
  4. PROCODIN [Concomitant]
     Route: 065
     Dates: start: 20141129, end: 20141224
  5. HYDROCORTISONE. [Concomitant]
     Active Substance: HYDROCORTISONE
     Indication: HYPOPITUITARISM
     Route: 065
     Dates: start: 20141120, end: 20141125
  6. HYDROCORTISONE. [Concomitant]
     Active Substance: HYDROCORTISONE
     Route: 042
     Dates: start: 20141216, end: 20141218
  7. POTASSIUM DIHYDROGEN PHOSPHATE [Concomitant]
     Active Substance: POTASSIUM PHOSPHATE, MONOBASIC
     Indication: HYPOPHOSPHATAEMIA
     Route: 042
     Dates: start: 20141128, end: 20141128
  8. POTASSIUM DIHYDROGEN PHOSPHATE [Concomitant]
     Active Substance: POTASSIUM PHOSPHATE, MONOBASIC
     Route: 042
     Dates: start: 20141201, end: 20141201
  9. DEXTROMETHORPHAN HYDROBROMIDE. [Concomitant]
     Active Substance: DEXTROMETHORPHAN HYDROBROMIDE
     Indication: COUGH
     Route: 065
     Dates: start: 20141129, end: 20141129
  10. MAGNESIUM SULFATE. [Concomitant]
     Active Substance: MAGNESIUM SULFATE
     Indication: HYPOMAGNESAEMIA
     Route: 042
     Dates: start: 20141201, end: 20141201
  11. MAGNESIUM SULFATE. [Concomitant]
     Active Substance: MAGNESIUM SULFATE
     Route: 042
     Dates: start: 20141210, end: 20141210
  12. LEVOTHYROXINE SODIUM. [Concomitant]
     Active Substance: LEVOTHYROXINE SODIUM
     Indication: HYPOPITUITARISM
     Route: 065
     Dates: start: 20141120, end: 20141225
  13. HYDROCORTISONE. [Concomitant]
     Active Substance: HYDROCORTISONE
     Route: 042
     Dates: start: 20141126, end: 20141127
  14. HYDROCORTISONE. [Concomitant]
     Active Substance: HYDROCORTISONE
     Route: 042
     Dates: start: 20141212, end: 20141213
  15. HYDROCORTISONE. [Concomitant]
     Active Substance: HYDROCORTISONE
     Route: 042
     Dates: start: 20141212, end: 20141216
  16. MORPHINE SULFATE. [Concomitant]
     Active Substance: MORPHINE SULFATE
     Indication: DYSPNOEA
     Dosage: 5MG/5ML MIXTURE
     Route: 065
     Dates: start: 20141121, end: 20141127
  17. MORPHINE SULFATE. [Concomitant]
     Active Substance: MORPHINE SULFATE
     Route: 058
     Dates: start: 20141221, end: 20141221
  18. MEROPENEM. [Concomitant]
     Active Substance: MEROPENEM
     Indication: ABDOMINAL SEPSIS
     Route: 065
     Dates: start: 20141212, end: 20141212
  19. ALBUMINA [Concomitant]
     Route: 042
     Dates: start: 20141223, end: 20141223
  20. ALBUMINA [Concomitant]
     Route: 042
     Dates: start: 20141224, end: 20141224
  21. BACTRIM [Concomitant]
     Active Substance: SULFAMETHOXAZOLE\TRIMETHOPRIM
     Dosage: (80 MG TRIMETHOPRIM AND 400 MG SULFAMETHOXAZOLE)
     Route: 065
     Dates: start: 20141202, end: 20141225
  22. HIBISCRUB [Concomitant]
     Active Substance: CHLORHEXIDINE GLUCONATE
     Route: 065
     Dates: start: 20141207, end: 20141208
  23. ZOMETA [Concomitant]
     Active Substance: ZOLEDRONIC ACID
     Indication: HYPERCALCAEMIA OF MALIGNANCY
     Route: 042
     Dates: start: 20141224, end: 20141224
  24. NORMAL SALINE [Concomitant]
     Active Substance: SODIUM CHLORIDE
     Route: 042
     Dates: start: 20141221, end: 20141221
  25. FLUIMUCIL [Concomitant]
     Active Substance: ACETYLCYSTEINE
     Route: 065
     Dates: start: 20141218, end: 20141225
  26. HYDROCORTISONE. [Concomitant]
     Active Substance: HYDROCORTISONE
     Dosage: (EVERY EVENING)
     Route: 065
     Dates: start: 20141120, end: 20141125
  27. FAMOTIDINE. [Concomitant]
     Active Substance: FAMOTIDINE
     Indication: PROPHYLAXIS
     Route: 065
     Dates: start: 20141121, end: 20141125
  28. METOPROLOL TARTRATE. [Concomitant]
     Active Substance: METOPROLOL TARTRATE
     Indication: SINUS TACHYCARDIA
     Route: 065
     Dates: start: 20141125, end: 20141224
  29. ADENOSINE. [Concomitant]
     Active Substance: ADENOSINE
     Indication: SINUS TACHYCARDIA
     Route: 042
     Dates: start: 20141125, end: 20141125
  30. VENTOLIN [Concomitant]
     Active Substance: ALBUTEROL SULFATE
     Indication: DYSPNOEA
     Route: 055
     Dates: start: 20141204, end: 20141225
  31. NORMAL SALINE [Concomitant]
     Active Substance: SODIUM CHLORIDE
     Route: 042
     Dates: start: 20141215, end: 20141215
  32. NORMAL SALINE [Concomitant]
     Active Substance: SODIUM CHLORIDE
     Route: 042
     Dates: start: 20141216, end: 20141216
  33. FENTANYL. [Concomitant]
     Active Substance: FENTANYL
     Indication: PAIN
     Dosage: FORM STRENGTH: 12MCG/HOUR
     Route: 065
     Dates: start: 20141122, end: 20141224
  34. NEPRO HP [Concomitant]
     Route: 065
     Dates: start: 20141219, end: 20141222
  35. HYDROCORTISONE. [Concomitant]
     Active Substance: HYDROCORTISONE
     Route: 042
     Dates: start: 20141125, end: 20141125
  36. HYDROCORTISONE. [Concomitant]
     Active Substance: HYDROCORTISONE
     Route: 065
     Dates: start: 20141201, end: 20141205
  37. HYDROCORTISONE. [Concomitant]
     Active Substance: HYDROCORTISONE
     Route: 042
     Dates: start: 20141218, end: 20141222
  38. MORPHINE SULFATE. [Concomitant]
     Active Substance: MORPHINE SULFATE
     Indication: PAIN
     Dosage: 5MG/5ML MIXTURE
     Route: 065
     Dates: start: 20141127, end: 20141201
  39. MORPHINE SULFATE. [Concomitant]
     Active Substance: MORPHINE SULFATE
     Indication: COUGH
     Dosage: 5MG/5ML MIXTURE
     Route: 065
     Dates: start: 20141121, end: 20141127
  40. MORPHINE SULFATE. [Concomitant]
     Active Substance: MORPHINE SULFATE
     Route: 058
     Dates: start: 20141212, end: 20141225
  41. LOPERAMIDE HCL [Concomitant]
     Active Substance: LOPERAMIDE HYDROCHLORIDE
     Indication: DIARRHOEA
     Route: 065
     Dates: start: 20141121, end: 20141216
  42. ALPRAZOLAM. [Concomitant]
     Active Substance: ALPRAZOLAM
     Indication: INSOMNIA
     Route: 065
     Dates: start: 20141121, end: 20141225
  43. POTASSIUM DIHYDROGEN PHOSPHATE [Concomitant]
     Active Substance: POTASSIUM PHOSPHATE, MONOBASIC
     Route: 042
     Dates: start: 20141212, end: 20141212
  44. ALBUMINA [Concomitant]
     Indication: OEDEMA PERIPHERAL
     Route: 042
     Dates: start: 20141211, end: 20141211
  45. MAGNESIUM SULFATE. [Concomitant]
     Active Substance: MAGNESIUM SULFATE
     Route: 042
     Dates: start: 20141212, end: 20141212
  46. MYOTEIN [Concomitant]
     Indication: NUTRITIONAL SUPPLEMENTATION
     Route: 065
     Dates: start: 20141202, end: 20141219
  47. MYOTEIN [Concomitant]
     Route: 065
     Dates: start: 20141222, end: 20141222
  48. DOPAMINE [Concomitant]
     Active Substance: DOPAMINE\DOPAMINE HYDROCHLORIDE
     Indication: HYPOTENSION
     Route: 042
     Dates: start: 20141224, end: 20141224
  49. HARTMANN^S SOLUTION [Concomitant]
     Active Substance: CALCIUM CHLORIDE\POTASSIUM CHLORIDE\SODIUM CHLORIDE\SODIUM LACTATE
     Indication: HYPOTENSION
     Route: 042
     Dates: start: 20141224, end: 20141224
  50. NORMAL SALINE [Concomitant]
     Active Substance: SODIUM CHLORIDE
     Route: 042
     Dates: start: 20141210, end: 20141210
  51. NORMAL SALINE [Concomitant]
     Active Substance: SODIUM CHLORIDE
     Route: 042
     Dates: start: 20141218, end: 20141219
  52. STILNOX CR [Concomitant]
     Active Substance: ZOLPIDEM TARTRATE
     Indication: INSOMNIA
     Route: 065
  53. XANAX [Concomitant]
     Active Substance: ALPRAZOLAM
     Indication: INSOMNIA
     Route: 065
  54. FLUIMUCIL [Concomitant]
     Active Substance: ACETYLCYSTEINE
     Indication: PRODUCTIVE COUGH
     Route: 065
     Dates: start: 20141203, end: 20141205
  55. HYDROCORTISONE. [Concomitant]
     Active Substance: HYDROCORTISONE
     Route: 042
     Dates: start: 20141125, end: 20141126
  56. HYDROCORTISONE. [Concomitant]
     Active Substance: HYDROCORTISONE
     Route: 042
     Dates: start: 20141222, end: 20141225
  57. ALBUMINA [Concomitant]
     Route: 042
     Dates: start: 20141225, end: 20141225
  58. MAGNESIUM SULFATE. [Concomitant]
     Active Substance: MAGNESIUM SULFATE
     Route: 042
     Dates: start: 20141208, end: 20141208
  59. MAGNESIUM SULFATE. [Concomitant]
     Active Substance: MAGNESIUM SULFATE
     Route: 042
     Dates: start: 20141224, end: 20141224
  60. CIPROBAY [Concomitant]
     Active Substance: CIPROFLOXACIN
     Route: 065
     Dates: start: 20141202, end: 20141212
  61. MYOTEIN [Concomitant]
     Route: 065
     Dates: start: 20141219, end: 20141222
  62. PETHIDINE HCL [Concomitant]
     Indication: PAIN
     Route: 042
     Dates: start: 20141205, end: 20141205
  63. LASIX [Concomitant]
     Active Substance: FUROSEMIDE
     Indication: FLUID OVERLOAD
     Route: 065
     Dates: start: 20141208, end: 20141208
  64. LASIX [Concomitant]
     Active Substance: FUROSEMIDE
     Indication: PERICARDIAL EFFUSION
     Route: 042
     Dates: start: 20141224, end: 20141224
  65. CIPROFLOXACIN. [Concomitant]
     Active Substance: CIPROFLOXACIN
     Indication: ABDOMINAL SEPSIS
     Route: 042
     Dates: start: 20141212, end: 20141212
  66. POTASSIUM CHLORIDE. [Concomitant]
     Active Substance: POTASSIUM CHLORIDE
     Indication: HYPOKALAEMIA
     Dosage: DOSE: 10
     Route: 042
     Dates: start: 20141224, end: 20141224
  67. CAVILON NO STING BARRIER FILM [Concomitant]
     Route: 061
     Dates: start: 20141215, end: 20141225
  68. ATEZOLIZUMAB. [Suspect]
     Active Substance: ATEZOLIZUMAB
     Indication: NEOPLASM
     Dosage: MOST RECENT DOSE PRIOR TO EVENT: 800MG ON 01/DEC/2014
     Route: 042
     Dates: start: 20141111
  69. GABAPENTIN. [Concomitant]
     Active Substance: GABAPENTIN
     Indication: NEUROPATHY PERIPHERAL
     Route: 065
  70. FENTANYL. [Concomitant]
     Active Substance: FENTANYL
     Indication: COUGH
     Dosage: FORM STRENGTH: 12MCG/HOUR PATCH
     Route: 065
     Dates: start: 20141111, end: 20141211
  71. FLUIMUCIL [Concomitant]
     Active Substance: ACETYLCYSTEINE
     Indication: COUGH
     Route: 065
     Dates: start: 20141120, end: 20141125
  72. NEPRO HP [Concomitant]
     Indication: NUTRITIONAL SUPPLEMENTATION
     Route: 065
     Dates: start: 20141120, end: 20141219
  73. HYDROCORTISONE. [Concomitant]
     Active Substance: HYDROCORTISONE
     Route: 065
     Dates: start: 20141205, end: 20141212
  74. HYDROCORTISONE. [Concomitant]
     Active Substance: HYDROCORTISONE
     Route: 042
     Dates: start: 20141218, end: 20141218
  75. MEROPENEM. [Concomitant]
     Active Substance: MEROPENEM
     Indication: INFECTION
     Route: 042
     Dates: start: 20141124, end: 20141202
  76. NEXIUM [Concomitant]
     Active Substance: ESOMEPRAZOLE MAGNESIUM
     Route: 065
     Dates: start: 20141125, end: 20141225
  77. POTASSIUM DIHYDROGEN PHOSPHATE [Concomitant]
     Active Substance: POTASSIUM PHOSPHATE, MONOBASIC
     Route: 042
     Dates: start: 20141224, end: 20141224
  78. MAGNESIUM SULFATE. [Concomitant]
     Active Substance: MAGNESIUM SULFATE
     Route: 042
     Dates: start: 20141221, end: 20141221
  79. PIPERACILLIN/TAZOBACTAM [Concomitant]
     Active Substance: PIPERACILLIN SODIUM\TAZOBACTAM SODIUM
     Indication: ABDOMINAL SEPSIS
     Route: 042
     Dates: start: 20141224, end: 20141225
  80. NORMAL SALINE [Concomitant]
     Active Substance: SODIUM CHLORIDE
     Route: 042
     Dates: start: 20141216, end: 20141218
  81. COBIMETINIB. [Suspect]
     Active Substance: COBIMETINIB
     Indication: NEOPLASM
     Dosage: MOST RECENT DOSE PRIOR TO EVENT: 60MG ON 18/NOV/2014
     Route: 048
     Dates: start: 20141028
  82. REFRESH PLUS [Concomitant]
     Active Substance: CARBOXYMETHYLCELLULOSE SODIUM
     Route: 065
     Dates: start: 20141023
  83. FERROUS FUMARATE [Concomitant]
     Active Substance: FERROUS FUMARATE
     Route: 065
     Dates: start: 20141120, end: 20141224
  84. HYDROCORTISONE. [Concomitant]
     Active Substance: HYDROCORTISONE
     Route: 065
     Dates: start: 20141121, end: 20141125
  85. HYDROCORTISONE. [Concomitant]
     Active Substance: HYDROCORTISONE
     Route: 065
     Dates: start: 20141127, end: 20141201
  86. NYSTATIN. [Concomitant]
     Active Substance: NYSTATIN
     Indication: ORAL CANDIDIASIS
     Route: 065
     Dates: start: 20141120, end: 20141225
  87. MORPHINE SULFATE. [Concomitant]
     Active Substance: MORPHINE SULFATE
     Route: 065
     Dates: start: 20141201, end: 20141224
  88. MORPHINE SULFATE. [Concomitant]
     Active Substance: MORPHINE SULFATE
     Route: 058
     Dates: start: 20141224, end: 20141225
  89. PREDNISOLONE. [Concomitant]
     Active Substance: PREDNISOLONE
     Indication: HYPOPITUITARISM
     Route: 065
     Dates: start: 20141127, end: 20141127
  90. FLAGYL [Concomitant]
     Active Substance: METRONIDAZOLE\METRONIDAZOLE HYDROCHLORIDE
     Indication: ABDOMINAL SEPSIS
     Route: 042
     Dates: start: 20141212, end: 20141212
  91. XANAX [Concomitant]
     Active Substance: ALPRAZOLAM
     Indication: ANXIETY
  92. JEVITY LIQUID [Concomitant]
     Indication: NUTRITIONAL SUPPLEMENTATION
     Route: 065
     Dates: start: 20141120, end: 20141219
  93. POTASSIUM DIHYDROGEN PHOSPHATE [Concomitant]
     Active Substance: POTASSIUM PHOSPHATE, MONOBASIC
     Route: 042
     Dates: start: 20141208, end: 20141208
  94. ALBUMINA [Concomitant]
     Indication: HYPOTENSION
     Route: 042
     Dates: start: 20141130, end: 20141130
  95. MAGNESIUM SULFATE. [Concomitant]
     Active Substance: MAGNESIUM SULFATE
     Route: 042
     Dates: start: 20141216, end: 20141216
  96. FLAGYL [Concomitant]
     Active Substance: METRONIDAZOLE\METRONIDAZOLE HYDROCHLORIDE
     Route: 065
     Dates: start: 20141202, end: 20141212
  97. FLAGYL [Concomitant]
     Active Substance: METRONIDAZOLE\METRONIDAZOLE HYDROCHLORIDE
     Route: 065
     Dates: start: 20141223, end: 20141224
  98. CIPROFLOXACIN. [Concomitant]
     Active Substance: CIPROFLOXACIN
     Route: 042
     Dates: start: 20141212, end: 20141212
  99. CIPROFLOXACIN. [Concomitant]
     Active Substance: CIPROFLOXACIN
     Route: 042
     Dates: start: 20141223, end: 20141224
  100. NORMAL SALINE [Concomitant]
     Active Substance: SODIUM CHLORIDE
     Route: 042
     Dates: start: 20141220, end: 20141220

REACTIONS (1)
  - Sepsis [Not Recovered/Not Resolved]

NARRATIVE: CASE EVENT DATE: 20141225
